FAERS Safety Report 9017158 (Version 1)
Quarter: 2013Q1

REPORT INFORMATION
  Report Type: Spontaneous
  Country: AT (occurrence: AT)
  Receive Date: 20130117
  Receipt Date: 20130117
  Transmission Date: 20140127
  Serious: Yes (Hospitalization)
  Sender: FDA-Public Use
  Company Number: AT-MYLANLABS-2013S1000445

PATIENT
  Age: 26 Year
  Sex: Male
  Weight: 115 kg

DRUGS (1)
  1. FUROSEMIDE [Suspect]
     Dosage: 2 X 80MG OF FUROSEMIDE 24 AND 48H PRIOR TO COMPETITION, RESPECTIVELY
     Route: 048

REACTIONS (6)
  - Hypokalaemia [Recovering/Resolving]
  - Paralysis [Recovering/Resolving]
  - Intentional drug misuse [Unknown]
  - Sinus tachycardia [Unknown]
  - Electrocardiogram abnormal [Recovered/Resolved]
  - Muscle spasms [Recovered/Resolved]
